FAERS Safety Report 5742827-X (Version None)
Quarter: 2008Q2

REPORT INFORMATION
  Report Type: 
  Country: None (occurrence: None)
  Receive Date: 20080519
  Receipt Date: 20080513
  Transmission Date: 20081010
  Serious: Yes (Other)
  Sender: FDA-Public Use
  Company Number: US-JNJFOC-20080502773

PATIENT
  Age: 66 Year
  Sex: Female
  Weight: 66.23 kg

DRUGS (16)
  1. EXTRA STRENGTH TYLENOL [Suspect]
     Route: 048
  2. EXTRA STRENGTH TYLENOL [Suspect]
     Indication: MYALGIA
     Route: 048
  3. METFORMIN HCL [Concomitant]
     Indication: DIABETES MELLITUS
  4. SPIRONOLACTONE [Concomitant]
     Indication: DIURETIC THERAPY
  5. ZYRTEC [Concomitant]
     Indication: PHOTOSENSITIVITY ALLERGIC REACTION
  6. ADVAIR DISKUS 100/50 [Concomitant]
     Dosage: 500/50 A DAY
  7. WELCHOL [Concomitant]
     Indication: BLOOD CHOLESTEROL INCREASED
  8. PRILOSEC [Concomitant]
     Indication: GASTRIC DISORDER
  9. ATACAND [Concomitant]
     Indication: CARDIAC DISORDER
  10. ZOLOFT [Concomitant]
     Indication: NERVOUSNESS
  11. BAYER [Concomitant]
     Indication: THROMBOSIS PROPHYLAXIS
  12. CARTIA XT [Concomitant]
     Indication: CARDIAC DISORDER
  13. XANAX [Concomitant]
     Indication: ANXIETY
  14. PREMARIN [Concomitant]
     Indication: HORMONE REPLACEMENT THERAPY
  15. LEVOXYL [Concomitant]
     Indication: THYROID DISORDER
  16. NITROGLYCERIN [Concomitant]

REACTIONS (3)
  - CONTUSION [None]
  - OEDEMA PERIPHERAL [None]
  - PAIN IN EXTREMITY [None]
